FAERS Safety Report 18228961 (Version 1)
Quarter: 2020Q3

REPORT INFORMATION
  Report Type: Spontaneous
  Country: US (occurrence: US)
  Receive Date: 20200903
  Receipt Date: 20200903
  Transmission Date: 20201103
  Serious: Yes (Other)
  Sender: FDA-Public Use
  Company Number: US-PFIZER INC-2020340963

PATIENT
  Age: 53 Year
  Sex: Female
  Weight: 61.23 kg

DRUGS (1)
  1. PREMPRO [Suspect]
     Active Substance: ESTROGENS, CONJUGATED\MEDROXYPROGESTERONE ACETATE
     Indication: HOT FLUSH
     Dosage: 0.45/1.5 MG, 1X/DAY (BEFORE BED)
     Dates: start: 2020

REACTIONS (7)
  - Menstrual disorder [Not Recovered/Not Resolved]
  - Abdominal pain lower [Recovering/Resolving]
  - Breast tenderness [Not Recovered/Not Resolved]
  - Fluid retention [Unknown]
  - Therapeutic product effect incomplete [Not Recovered/Not Resolved]
  - Postmenopausal haemorrhage [Not Recovered/Not Resolved]
  - Acne [Unknown]
